FAERS Safety Report 7561178-4 (Version None)
Quarter: 2011Q2

REPORT INFORMATION
  Report Type: 
  Country: None (occurrence: None)
  Receive Date: 20110621
  Receipt Date: 20101228
  Transmission Date: 20111010
  Serious: Yes (Other)
  Sender: FDA-Public Use
  Company Number: US-ASTRAZENECA-2010SE61031

PATIENT
  Age: 6 Year
  Sex: Female
  Weight: 21.8 kg

DRUGS (2)
  1. PULMICORT [Suspect]
     Indication: ASTHMA
     Route: 055
  2. XOPENEX [Suspect]
     Indication: ASTHMA
     Dosage: 1.25 MG/3ML AS REQUIRED
     Dates: end: 20101202

REACTIONS (4)
  - FLUSHING [None]
  - ASTHMA [None]
  - DRUG INEFFECTIVE [None]
  - ANGIOEDEMA [None]
